FAERS Safety Report 14709257 (Version 2)
Quarter: 2020Q4

REPORT INFORMATION
  Report Type: Spontaneous
  Country: FR (occurrence: FR)
  Receive Date: 20180403
  Receipt Date: 20201026
  Transmission Date: 20210113
  Serious: Yes (Death, Life-Threatening, Hospitalization, Other)
  Sender: FDA-Public Use
  Company Number: FR-MYLANLABS-2018M1019389

PATIENT
  Age: 77 Year
  Sex: Male
  Weight: 81 kg

DRUGS (13)
  1. CEFAZOLIN MYLAN [Interacting]
     Active Substance: CEFAZOLIN
     Indication: ENDOCARDITIS STAPHYLOCOCCAL
     Dosage: 6 G, QD
     Route: 042
  2. RIFAMPICIN [Suspect]
     Active Substance: RIFAMPIN
     Indication: ENDOCARDITIS STAPHYLOCOCCAL
     Dosage: 600 MG, BID
     Route: 065
  3. RIFAMPICIN [Interacting]
     Active Substance: RIFAMPIN
     Indication: STAPHYLOCOCCAL INFECTION
  4. INEXIUM                            /01479302/ [Concomitant]
     Active Substance: ESOMEPRAZOLE MAGNESIUM
     Dosage: UNK
     Route: 048
  5. RIFAMPICIN [Interacting]
     Active Substance: RIFAMPIN
     Indication: ENDOCARDITIS
     Dosage: 600 MILLIGRAM, QD
     Route: 042
     Dates: start: 20160929, end: 20161012
  6. CEFAZOLIN MYLAN [Interacting]
     Active Substance: CEFAZOLIN
     Indication: STAPHYLOCOCCAL INFECTION
  7. LOVENOX [Interacting]
     Active Substance: ENOXAPARIN SODIUM
     Indication: THROMBOSIS PROPHYLAXIS
     Dosage: 20000 INTERNATIONAL UNIT, QD
     Route: 058
     Dates: start: 20161005, end: 20161005
  8. LEVOTHYROX [Concomitant]
     Active Substance: LEVOTHYROXINE
     Dosage: UNK
     Route: 048
  9. TAHOR [Concomitant]
     Active Substance: ATORVASTATIN CALCIUM
     Dosage: UNK
  10. CEFAZOLIN MYLAN [Interacting]
     Active Substance: CEFAZOLIN
     Indication: ENDOCARDITIS
     Dosage: 2 GRAM, QD
     Route: 042
     Dates: start: 20160929, end: 20161012
  11. KARDEGIC [Interacting]
     Active Substance: ASPIRIN DL-LYSINE
     Indication: THROMBOSIS PROPHYLAXIS
     Dosage: 160 MILLIGRAM, QD
     Route: 048
     Dates: start: 20160929, end: 20161017
  12. DAFALGAN [Concomitant]
     Active Substance: ACETAMINOPHEN
     Dosage: UNK
     Route: 048
  13. OXACILLIN [Concomitant]
     Active Substance: OXACILLIN SODIUM
     Indication: STAPHYLOCOCCAL INFECTION
     Dosage: UNK
     Route: 065

REACTIONS (8)
  - Vitamin K deficiency [Fatal]
  - Drug interaction [Unknown]
  - Coagulopathy [Fatal]
  - Pericardial haemorrhage [Fatal]
  - Cardiogenic shock [Fatal]
  - Shock haemorrhagic [Fatal]
  - Hypoprothrombinaemia [Fatal]
  - Hypovitaminosis [Fatal]

NARRATIVE: CASE EVENT DATE: 20161003
